FAERS Safety Report 5577686-1 (Version None)
Quarter: 2007Q4

REPORT INFORMATION
  Report Type: 
  Country: None (occurrence: None)
  Receive Date: 20071227
  Receipt Date: 20071212
  Transmission Date: 20080405
  Serious: Yes (Other)
  Sender: FDA-Public Use
  Company Number: 002#8#2007-00386

PATIENT
  Age: 3 Year
  Sex: Male
  Weight: 17 kg

DRUGS (2)
  1. POLYETHYLENE GLYCOL [Suspect]
     Indication: THERAPEUTIC PROCEDURE
     Dosage: 150ML, 1 IN 1 H, NASOGASTRIC
  2. BUPROPION HCL [Suspect]
     Indication: ACCIDENTAL EXPOSURE
     Dosage: 2.4 MG, 1, ORAL
     Route: 048

REACTIONS (18)
  - ABDOMINAL DISTENSION [None]
  - ACCIDENTAL EXPOSURE [None]
  - ACUTE RESPIRATORY DISTRESS SYNDROME [None]
  - AREFLEXIA [None]
  - BRADYCARDIA [None]
  - GRAND MAL CONVULSION [None]
  - HYPOTENSION [None]
  - INCORRECT DOSE ADMINISTERED [None]
  - NO THERAPEUTIC RESPONSE [None]
  - OFF LABEL USE [None]
  - OVERDOSE [None]
  - PNEUMONIA ASPIRATION [None]
  - POST PROCEDURAL COMPLICATION [None]
  - PULMONARY OEDEMA [None]
  - PULSE ABSENT [None]
  - SINUS TACHYCARDIA [None]
  - SOMNOLENCE [None]
  - VOMITING [None]
